FAERS Safety Report 4599091-7 (Version None)
Quarter: 2005Q1

REPORT INFORMATION
  Report Type: 
  Country: None (occurrence: None)
  Receive Date: 20050302
  Receipt Date: 20050215
  Transmission Date: 20050727
  Serious: Yes (Hospitalization)
  Sender: FDA-Public Use
  Company Number: 230041K04FRA

PATIENT
  Age: 32 Year
  Sex: Male
  Weight: 80 kg

DRUGS (3)
  1. REBIF [Suspect]
     Indication: MULTIPLE SCLEROSIS
     Dosage: 44 MCG, 3 IN 1 WEEKS
     Dates: start: 20000101
  2. ACETAMINOPHEN [Concomitant]
  3. DYNAMAG [Concomitant]

REACTIONS (4)
  - INJECTION SITE ABSCESS [None]
  - INJECTION SITE INDURATION [None]
  - LIPODYSTROPHY ACQUIRED [None]
  - MOVEMENT DISORDER [None]
